FAERS Safety Report 11364649 (Version 1)
Quarter: 2015Q3

REPORT INFORMATION
  Report Type: Spontaneous
  Country: US (occurrence: None)
  Receive Date: 20150810
  Receipt Date: 20150810
  Transmission Date: 20151125
  Serious: No
  Sender: FDA-Public Use
  Company Number: None

PATIENT
  Age: 52 Year
  Sex: Female
  Weight: 81.19 kg

DRUGS (9)
  1. CALCIUM CITRATE [Concomitant]
     Active Substance: CALCIUM CITRATE
  2. MULTIPLE VITAMIN [Concomitant]
     Active Substance: VITAMINS
  3. NASONEX [Concomitant]
     Active Substance: MOMETASONE FUROATE
  4. B COMPLEX-VITAMIN B12 (SORBEX) [Concomitant]
  5. VITAMIN D3, CHOLECALCIFEROL [Concomitant]
  6. PROLIA [Suspect]
     Active Substance: DENOSUMAB
     Indication: OSTEOPOROSIS
     Route: 058
  7. LEVOTHYROXINE. [Concomitant]
     Active Substance: LEVOTHYROXINE
  8. CYCLOBENZAPRINE (FLEXERIL) [Concomitant]
  9. ESTROGENS, CONJUGATED (PREMARIN) [Concomitant]

REACTIONS (5)
  - Dizziness [None]
  - Paraesthesia [None]
  - Injection site pain [None]
  - Pain in jaw [None]
  - Headache [None]

NARRATIVE: CASE EVENT DATE: 20150807
